FAERS Safety Report 10174653 (Version 8)
Quarter: 2016Q1

REPORT INFORMATION
  Report Type: Spontaneous
  Country: US (occurrence: US)
  Receive Date: 20140515
  Receipt Date: 20160106
  Transmission Date: 20160525
  Serious: Yes (Other)
  Sender: FDA-Public Use
  Company Number: US-GLAXOSMITHKLINE-A1073221A

PATIENT
  Age: 44 Year
  Sex: Female

DRUGS (14)
  1. CLONAZEPAM. [Concomitant]
     Active Substance: CLONAZEPAM
  2. POTASSIUM CITRATE. [Concomitant]
     Active Substance: POTASSIUM CITRATE
  3. ALLERCLEAR (NOS) [Concomitant]
  4. SERTRALINE HYDROCHLORIDE. [Concomitant]
     Active Substance: SERTRALINE HYDROCHLORIDE
  5. FLEXERIL [Concomitant]
     Active Substance: CYCLOBENZAPRINE HYDROCHLORIDE
  6. IMITREX [Suspect]
     Active Substance: SUMATRIPTAN SUCCINATE
     Indication: MIGRAINE
     Dosage: 5MG DOSE AS NEEDED
     Route: 045
     Dates: start: 201005
  7. IMITREX [Suspect]
     Active Substance: SUMATRIPTAN SUCCINATE
     Indication: MIGRAINE
     Dosage: VARIABLE DOSE AS REQUIRED;50 MG TABLETSFU: 50 MG AND 100MG
     Route: 048
     Dates: start: 201005
  8. CRESTOR [Concomitant]
     Active Substance: ROSUVASTATIN CALCIUM
  9. FLONASE [Concomitant]
     Active Substance: FLUTICASONE PROPIONATE
  10. FLONASE [Suspect]
     Active Substance: FLUTICASONE PROPIONATE
     Indication: ILL-DEFINED DISORDER
     Dosage: 2 DF, QD
     Route: 045
     Dates: start: 20100811
  11. FLONASE [Suspect]
     Active Substance: FLUTICASONE PROPIONATE
     Indication: MULTIPLE ALLERGIES
  12. LOVAZA [Suspect]
     Active Substance: OMEGA-3-ACID ETHYL ESTERS
     Indication: BLOOD CHOLESTEROL
     Dosage: 2 UNK, BID
     Route: 048
     Dates: start: 20110511
  13. TRILEPTAL [Concomitant]
     Active Substance: OXCARBAZEPINE
  14. LORATADINE. [Concomitant]
     Active Substance: LORATADINE

REACTIONS (14)
  - Hepatic neoplasm [Unknown]
  - Nausea [Unknown]
  - Asthma [Unknown]
  - Drug dose omission [Unknown]
  - Nasopharyngitis [Unknown]
  - Hypersensitivity [Unknown]
  - Influenza [Unknown]
  - Adverse event [Unknown]
  - Menorrhagia [Unknown]
  - Stress [Unknown]
  - Migraine [Unknown]
  - Endometriosis [Unknown]
  - Nephrolithiasis [Recovering/Resolving]
  - Headache [Unknown]

NARRATIVE: CASE EVENT DATE: 201009
